FAERS Safety Report 20708594 (Version 3)
Quarter: 2022Q2

REPORT INFORMATION
  Report Type: Spontaneous
  Country: US (occurrence: US)
  Receive Date: 20220414
  Receipt Date: 20220518
  Transmission Date: 20220721
  Serious: Yes (Other)
  Sender: FDA-Public Use
  Company Number: US-GLAXOSMITHKLINE-US2022AMR063426

PATIENT

DRUGS (2)
  1. ZEJULA [Suspect]
     Active Substance: NIRAPARIB
     Indication: Ovarian cancer
     Dosage: 200 MG, QD
     Dates: start: 202203
  2. ZEJULA [Suspect]
     Active Substance: NIRAPARIB
     Dosage: 300 MG, QD
     Dates: start: 202204

REACTIONS (33)
  - Systemic lupus erythematosus [Unknown]
  - Ear pruritus [Unknown]
  - Throat irritation [Unknown]
  - Paraesthesia [Recovered/Resolved]
  - Blood creatinine increased [Not Recovered/Not Resolved]
  - Nausea [Recovering/Resolving]
  - Diarrhoea [Unknown]
  - Constipation [Not Recovered/Not Resolved]
  - Tooth infection [Recovering/Resolving]
  - Toothache [Recovering/Resolving]
  - Hypertension [Unknown]
  - Pain [Not Recovered/Not Resolved]
  - Dyspnoea exertional [Not Recovered/Not Resolved]
  - Decreased activity [Not Recovered/Not Resolved]
  - Condition aggravated [Not Recovered/Not Resolved]
  - Arthralgia [Unknown]
  - Fatigue [Unknown]
  - Asthenia [Unknown]
  - Inflammation [Unknown]
  - Dysstasia [Unknown]
  - Gait disturbance [Unknown]
  - Increased tendency to bruise [Unknown]
  - Nail discolouration [Unknown]
  - Insomnia [Unknown]
  - Blood urea increased [Unknown]
  - Blood bilirubin abnormal [Unknown]
  - White blood cell count decreased [Unknown]
  - Basophil count increased [Unknown]
  - Antinuclear antibody positive [Unknown]
  - C-reactive protein increased [Unknown]
  - Glomerular filtration rate decreased [Unknown]
  - Laboratory test abnormal [Unknown]
  - Product dose omission in error [Unknown]
